FAERS Safety Report 4511517-3 (Version None)
Quarter: 2004Q4

REPORT INFORMATION
  Report Type: 
  Country: None (occurrence: None)
  Receive Date: 20041129
  Receipt Date: 20040909
  Transmission Date: 20050328
  Serious: No
  Sender: FDA-Public Use
  Company Number: US-BRISTOL-MYERS SQUIBB COMPANY-12697967

PATIENT

DRUGS (1)
  1. ABILIFY [Suspect]

REACTIONS (8)
  - ARTHRITIS [None]
  - DIZZINESS [None]
  - FORMICATION [None]
  - HALLUCINATION, AUDITORY [None]
  - MENTAL IMPAIRMENT [None]
  - NERVOUSNESS [None]
  - PRURITUS [None]
  - RESTLESSNESS [None]
